FAERS Safety Report 18611455 (Version 8)
Quarter: 2023Q1

REPORT INFORMATION
  Report Type: Report from Study
  Country: DE (occurrence: DE)
  Receive Date: 20201214
  Receipt Date: 20230301
  Transmission Date: 20230418
  Serious: Yes (Other)
  Sender: FDA-Public Use
  Company Number: DE-002147023-NVSC2020DE305047

PATIENT
  Age: 69 Year
  Sex: Female
  Weight: 71 kg

DRUGS (14)
  1. ANASTROZOLE [Suspect]
     Active Substance: ANASTROZOLE
     Indication: Breast cancer metastatic
     Dosage: 2.5 MILLIGRAM, QD
     Route: 048
     Dates: start: 20200922
  2. KISQALI [Suspect]
     Active Substance: RIBOCICLIB
     Indication: Breast cancer metastatic
     Dosage: 600MG, QD(SCHEMA 21 DAYS INTAKE, 7 DAYS PAUSE)
     Route: 048
     Dates: start: 20201016, end: 20201027
  3. KISQALI [Suspect]
     Active Substance: RIBOCICLIB
     Dosage: 600MG, QD(SCHEMA 21 DAYS INTAKE, 7 DAYS PAUSE)
     Route: 048
     Dates: start: 20201113, end: 20201124
  4. KISQALI [Suspect]
     Active Substance: RIBOCICLIB
     Dosage: 400MG, QD(SCHEMA 21 DAYS INTAKE, 7 DAYS PAUSE)
     Route: 048
     Dates: start: 20201210, end: 20210106
  5. KISQALI [Suspect]
     Active Substance: RIBOCICLIB
     Dosage: 400MG, QD(SCHEMA 21 DAYS INTAKE, 7 DAYS PAUSE)
     Route: 048
     Dates: start: 20210121, end: 20210324
  6. KISQALI [Suspect]
     Active Substance: RIBOCICLIB
     Dosage: 400MG, QD(SCHEMA 21 DAYS INTAKE, 7 DAYS PAUSE)
     Route: 048
     Dates: start: 20210408, end: 20210630
  7. KISQALI [Suspect]
     Active Substance: RIBOCICLIB
     Dosage: 400MG, QD(SCHEMA 21 DAYS INTAKE, 7 DAYS PAUSE)
     Route: 048
     Dates: start: 20210708, end: 20210804
  8. KISQALI [Suspect]
     Active Substance: RIBOCICLIB
     Dosage: 400MG, QD(SCHEMA 21 DAYS INTAKE, 7 DAYS PAUSE)
     Route: 048
     Dates: start: 20210812, end: 20220126
  9. KISQALI [Suspect]
     Active Substance: RIBOCICLIB
     Dosage: 400MG, QD(SCHEMA 21 DAYS INTAKE, 7 DAYS PAUSE)
     Route: 048
     Dates: start: 20220804, end: 20220831
  10. KISQALI [Suspect]
     Active Substance: RIBOCICLIB
     Dosage: 400MG, QD(SCHEMA 21 DAYS INTAKE, 7 DAYS PAUSE)
     Route: 048
     Dates: start: 20220203, end: 20220427
  11. KISQALI [Suspect]
     Active Substance: RIBOCICLIB
     Dosage: 400MG, QD(SCHEMA 21 DAYS INTAKE, 7 DAYS PAUSE)
     Route: 048
     Dates: start: 20220908, end: 20221005
  12. KISQALI [Suspect]
     Active Substance: RIBOCICLIB
     Dosage: 400MG, QD(SCHEMA 21 DAYS INTAKE, 7 DAYS PAUSE)
     Route: 048
     Dates: start: 20220505, end: 20220727
  13. KISQALI [Suspect]
     Active Substance: RIBOCICLIB
     Dosage: 400MG, QD(SCHEMA 21 DAYS INTAKE, 7 DAYS PAUSE)
     Route: 048
     Dates: start: 20221013
  14. INNOHEP [Concomitant]
     Active Substance: TINZAPARIN SODIUM
     Indication: Product used for unknown indication
     Dosage: UNK (20000 IEUNK)
     Route: 065

REACTIONS (2)
  - Leukopenia [Recovering/Resolving]
  - Electrocardiogram QT prolonged [Recovered/Resolved]

NARRATIVE: CASE EVENT DATE: 20201028
